FAERS Safety Report 9919512 (Version 4)
Quarter: 2014Q2

REPORT INFORMATION
  Report Type: Report from Study
  Country: US (occurrence: US)
  Receive Date: 20140224
  Receipt Date: 20140414
  Transmission Date: 20141212
  Serious: Yes (Death, Hospitalization)
  Sender: FDA-Public Use
  Company Number: US-ACTELION-A-NJ2013-90073

PATIENT
  Age: 33 Year
  Sex: Female

DRUGS (6)
  1. VELETRI [Suspect]
     Indication: PULMONARY ARTERIAL HYPERTENSION
     Dosage: 104 NG/KG, UNK
     Route: 042
  2. VELETRI [Suspect]
     Dosage: 80 NG/KG, PER MIN
     Route: 042
     Dates: start: 20110403
  3. TRACLEER [Suspect]
     Indication: PULMONARY ARTERIAL HYPERTENSION
     Dosage: UNK
     Route: 048
  4. SILDENAFIL [Concomitant]
  5. SPIRONOLACTONE [Concomitant]
  6. ADCIRCA [Concomitant]

REACTIONS (10)
  - Death [Fatal]
  - Liver disorder [Unknown]
  - Pulmonary arterial hypertension [Unknown]
  - Disease complication [Unknown]
  - Cardiac failure congestive [Recovering/Resolving]
  - Chest pain [Recovering/Resolving]
  - Fluid retention [Unknown]
  - Ascites [Unknown]
  - Right ventricular failure [Recovering/Resolving]
  - Constipation [Unknown]
